FAERS Safety Report 5142901-5 (Version None)
Quarter: 2006Q4

REPORT INFORMATION
  Report Type: 
  Country: None (occurrence: None)
  Receive Date: 20061030
  Receipt Date: 20061016
  Transmission Date: 20070319
  Serious: Yes (Other)
  Sender: FDA-Public Use
  Company Number: 2006120473

PATIENT
  Sex: Female

DRUGS (4)
  1. CELEBREX [Suspect]
     Indication: PAIN
     Dosage: 400 MG 200 MG, 2 IN 1 D, ORAL
     Route: 048
     Dates: start: 20060927, end: 20060928
  2. LYRICA [Suspect]
     Indication: PAIN
     Dosage: 75 MG (75 MG, 1 IN 1 D), ORAL
     Route: 048
     Dates: start: 20061006, end: 20061007
  3. VALORON N RETARD (TILIDINE, NALOXONE) [Suspect]
     Indication: PAIN
     Dosage: UNIT DOSE 100/8 MG, TOTAL DOSE 200/16 MG (2 IN 1 D), ORAL
     Route: 048
     Dates: start: 20060927, end: 20061007
  4. TRAMADOL HCL [Concomitant]

REACTIONS (4)
  - CONDITION AGGRAVATED [None]
  - DIARRHOEA [None]
  - NAUSEA [None]
  - RESTLESS LEGS SYNDROME [None]
